FAERS Safety Report 6618055 (Version 3)
Quarter: 2013Q1

REPORT INFORMATION
  Report Type: Spontaneous
  Country: TW (occurrence: None)
  Receive Date: 20080407
  Receipt Date: 20130109
  Transmission Date: 20140127
  Serious: Yes (Death)
  Sender: FDA-Public Use
  Company Number: 2008AP000743

PATIENT
  Age: 26 Year
  Sex: Male

DRUGS (1)
  1. CARBAMAZEPINE [Suspect]
     Indication: SCHIZOPHRENIFORM DISORDER
     Dosage: 200 MG;BID

REACTIONS (7)
  - Toxic epidermal necrolysis [None]
  - Gastrointestinal haemorrhage [None]
  - Multi-organ failure [None]
  - Stevens-Johnson syndrome [None]
  - Respiratory distress [None]
  - Acute pulmonary oedema [None]
  - Renal impairment [None]
